FAERS Safety Report 20349743 (Version 1)
Quarter: 2022Q1

REPORT INFORMATION
  Report Type: Spontaneous
  Country: FR (occurrence: FR)
  Receive Date: 20220119
  Receipt Date: 20220119
  Transmission Date: 20220423
  Serious: Yes (Hospitalization)
  Sender: FDA-Public Use
  Company Number: None

PATIENT
  Age: 50 Year
  Sex: Male

DRUGS (2)
  1. TRAMADOL [Suspect]
     Active Substance: TRAMADOL
     Dosage: CHLORHYDRATE DE TRAMADOL
     Route: 065
  2. OXAZEPAM [Suspect]
     Active Substance: OXAZEPAM
     Route: 065

REACTIONS (1)
  - Sedation [Recovered/Resolved]
